FAERS Safety Report 9411768 (Version 2)
Quarter: 2013Q3

REPORT INFORMATION
  Report Type: Spontaneous
  Country: US (occurrence: US)
  Receive Date: 20130722
  Receipt Date: 20130812
  Transmission Date: 20140515
  Serious: No
  Sender: FDA-Public Use
  Company Number: US-PFIZER INC-2013210935

PATIENT
  Sex: 0

DRUGS (4)
  1. GLUCOTROL [Suspect]
     Dosage: UNK
  2. LEVEMIR [Suspect]
     Dosage: UNK
  3. VICTOZA [Suspect]
     Dosage: UNK
  4. METFORMIN HYDROCHLORIDE [Suspect]
     Dosage: UNK

REACTIONS (1)
  - Oedema peripheral [Unknown]
